FAERS Safety Report 8546597 (Version 4)
Quarter: 2012Q4

REPORT INFORMATION
  Report Type: 
  Country: JP (occurrence: JP)
  Receive Date: 20120504
  Receipt Date: 20120904
  Transmission Date: 20130627
  Serious: Yes (Life-Threatening, Hospitalization, Other)
  Sender: FDA-Public Use
  Company Number: JP-JNJFOC-20120413816

PATIENT
  Age: 88 Year
  Sex: Female
  Weight: 38 kg

DRUGS (6)
  1. REMINYL [Suspect]
     Indication: DEMENTIA ALZHEIMER^S TYPE
     Route: 048
     Dates: start: 20110920, end: 20120424
  2. REMINYL [Suspect]
     Indication: DEMENTIA ALZHEIMER^S TYPE
     Route: 048
     Dates: start: 20110426, end: 20110919
  3. FRANDOL [Suspect]
     Indication: ANGINA PECTORIS
     Route: 062
     Dates: start: 20061128
  4. NEUROVITAN [Concomitant]
     Route: 048
     Dates: start: 20090217
  5. VITAMIN PREPARATION COMPOUND [Concomitant]
     Route: 048
     Dates: end: 20120424
  6. HALOMONTH [Concomitant]
     Indication: DELIRIUM
     Route: 030
     Dates: start: 20120214, end: 20120313

REACTIONS (2)
  - Gastric ulcer haemorrhage [Recovered/Resolved]
  - Anaemia [Recovered/Resolved]
